FAERS Safety Report 19433014 (Version 2)
Quarter: 2021Q3

REPORT INFORMATION
  Report Type: Spontaneous
  Country: US (occurrence: US)
  Receive Date: 20210617
  Receipt Date: 20210714
  Transmission Date: 20211014
  Serious: Yes (Hospitalization)
  Sender: FDA-Public Use
  Company Number: US-ROCHE-2848198

PATIENT
  Sex: Female
  Weight: 58.8 kg

DRUGS (15)
  1. ACTIVASE [Suspect]
     Active Substance: ALTEPLASE
  2. LOSARTAN. [Concomitant]
     Active Substance: LOSARTAN
     Route: 048
  3. HCTZ [Concomitant]
     Active Substance: HYDROCHLOROTHIAZIDE
  4. ACTIVASE [Suspect]
     Active Substance: ALTEPLASE
     Indication: CEREBROVASCULAR ACCIDENT
     Dosage: GIVEN AT 10:31AM; ONE TIME BOLUS OVER 60 SECONDS; ONGOING: NO
     Route: 042
     Dates: start: 20210605, end: 20210605
  5. CYMBALTA [Concomitant]
     Active Substance: DULOXETINE HYDROCHLORIDE
     Route: 048
  6. ESGIC [Concomitant]
     Active Substance: ACETAMINOPHEN\BUTALBITAL\CAFFEINE
     Route: 048
  7. LANTUS [Concomitant]
     Active Substance: INSULIN GLARGINE
     Dosage: 10 UNIT NOT REPORTED
     Route: 058
  8. MELOXICAM. [Concomitant]
     Active Substance: MELOXICAM
     Route: 048
  9. LORTAB [Concomitant]
     Active Substance: ACETAMINOPHEN\HYDROCODONE BITARTRATE
     Dosage: 5/325 MG 1?2 TABS EVERY FOUR HOURS AS NEEDED
     Route: 048
  10. ACTIVASE [Suspect]
     Active Substance: ALTEPLASE
     Dosage: ONE TIME DOSE GIVEN OVER ONE HOUR; ONGOING: NO
     Route: 042
     Dates: start: 20210605, end: 20210605
  11. IBANDRONIC ACID. [Suspect]
     Active Substance: IBANDRONIC ACID
     Indication: PRODUCT USED FOR UNKNOWN INDICATION
     Route: 048
  12. HYDRALAZINE [Concomitant]
     Active Substance: HYDRALAZINE HYDROCHLORIDE
     Route: 048
  13. ACTIVASE [Suspect]
     Active Substance: ALTEPLASE
  14. VITAMIN D3 [Concomitant]
     Active Substance: CHOLECALCIFEROL
     Dosage: 1000 UNIT NOT REPORTED
     Route: 048
  15. GEMFIBROZIL. [Concomitant]
     Active Substance: GEMFIBROZIL
     Route: 048

REACTIONS (6)
  - Vomiting [Unknown]
  - Cerebral haemorrhage [Unknown]
  - Off label use [Unknown]
  - Areflexia [Unknown]
  - Hemiparesis [Unknown]
  - Speech disorder [Unknown]
